FAERS Safety Report 4609384-2 (Version None)
Quarter: 2005Q2

REPORT INFORMATION
  Report Type: 
  Country: None (occurrence: None)
  Receive Date: 20050301
  Receipt Date: 20041203
  Transmission Date: 20051028
  Serious: Yes (Disabling)
  Sender: FDA-Public Use
  Company Number: WAES 0412USA00564

PATIENT
  Age: 49 Year
  Sex: Male

DRUGS (4)
  1. ZETIA [Suspect]
     Dosage: 10 MG DAILY PO
     Route: 048
     Dates: start: 20040201, end: 20040101
  2. BENICAR [Concomitant]
  3. LIPITOR [Concomitant]
  4. PLAVIX [Concomitant]

REACTIONS (1)
  - ABDOMINAL PAIN [None]
